FAERS Safety Report 13653209 (Version 1)
Quarter: 2017Q2

REPORT INFORMATION
  Report Type: Spontaneous
  Country: US (occurrence: US)
  Receive Date: 20170614
  Receipt Date: 20170614
  Transmission Date: 20170830
  Serious: Yes (Other)
  Sender: FDA-Public Use
  Company Number: US-ROCHE-662063

PATIENT
  Age: 48 Year
  Sex: Female
  Weight: 60.4 kg

DRUGS (2)
  1. XELODA [Suspect]
     Active Substance: CAPECITABINE
     Indication: INFLAMMATORY CARCINOMA OF THE BREAST
     Dosage: TAKEN FOR 2 WEEKS THEN ONE WEEK OFF
     Route: 048
     Dates: start: 20090823, end: 20091012
  2. TYKERB [Suspect]
     Active Substance: LAPATINIB DITOSYLATE
     Indication: INFLAMMATORY CARCINOMA OF THE BREAST
     Dosage: DOSE: 4 DOSE FORMS
     Route: 048

REACTIONS (8)
  - Headache [Recovered/Resolved]
  - Thrombocytopenia [Recovered/Resolved]
  - Fatigue [Recovered/Resolved]
  - Palmar-plantar erythrodysaesthesia syndrome [Not Recovered/Not Resolved]
  - Somnolence [Recovered/Resolved]
  - Diarrhoea [Recovered/Resolved]
  - Liver function test increased [Unknown]
  - Head discomfort [Recovered/Resolved]

NARRATIVE: CASE EVENT DATE: 20090809
